FAERS Safety Report 25764210 (Version 1)
Quarter: 2025Q3

REPORT INFORMATION
  Report Type: Spontaneous
  Country: US (occurrence: US)
  Receive Date: 20250905
  Receipt Date: 20250905
  Transmission Date: 20251021
  Serious: No
  Sender: DOMPE FARMACEUTICI
  Company Number: US-FARMAPROD-202412-4353

PATIENT
  Sex: Female

DRUGS (6)
  1. OXERVATE [Suspect]
     Active Substance: CENEGERMIN-BKBJ
     Indication: Neurotrophic keratopathy
     Route: 047
     Dates: start: 20241118
  2. AUTOLOGOUS HUMAN CORNEAL EPITHELIAL CELLS [Concomitant]
     Active Substance: AUTOLOGOUS HUMAN CORNEAL EPITHELIAL CELLS
  3. WOMEN^S 50 PLUS ADVANCED [Concomitant]
  4. BIOTIN [Concomitant]
     Active Substance: BIOTIN
  5. MULTI-VITAMIN DAILY [Concomitant]
  6. GLUCOSAMINE-CHONDROITIN-D3 [Concomitant]

REACTIONS (1)
  - Eye irritation [Unknown]
